FAERS Safety Report 5231005-9 (Version None)
Quarter: 2007Q1

REPORT INFORMATION
  Report Type: 
  Country: None (occurrence: None)
  Receive Date: 20070206
  Receipt Date: 20070123
  Transmission Date: 20070707
  Serious: Yes (Life-Threatening, Hospitalization)
  Sender: FDA-Public Use
  Company Number: US-ELI_LILLY_AND_COMPANY-US200701004613

PATIENT
  Age: 41 Year
  Sex: Male
  Weight: 73.6 kg

DRUGS (3)
  1. CYMBALTA [Suspect]
     Indication: PANIC DISORDER
     Dosage: 30 MG, DAILY (1/D)
     Route: 048
     Dates: start: 20061113, end: 20061120
  2. CYMBALTA [Suspect]
     Dosage: 60 MG, DAILY (1/D)
     Route: 048
     Dates: start: 20061114, end: 20061206
  3. ETHANOL [Concomitant]

REACTIONS (3)
  - BLOOD SODIUM DECREASED [None]
  - FALL [None]
  - SPEECH DISORDER [None]
